FAERS Safety Report 13443202 (Version 1)
Quarter: 2017Q2

REPORT INFORMATION
  Report Type: Spontaneous
  Country: GB (occurrence: GB)
  Receive Date: 20170414
  Receipt Date: 20170414
  Transmission Date: 20170830
  Serious: Yes (Other)
  Sender: FDA-Public Use
  Company Number: GB-TEVA-757645ACC

PATIENT
  Sex: Male

DRUGS (1)
  1. PROPRANOLOL HYDROCHLORIDE. [Suspect]
     Active Substance: PROPRANOLOL HYDROCHLORIDE
     Dosage: 160 MILLIGRAM DAILY;
     Route: 048

REACTIONS (20)
  - Depressed level of consciousness [Unknown]
  - Heart rate increased [Unknown]
  - Adrenal disorder [Unknown]
  - Depression [Unknown]
  - Hypoaesthesia [Unknown]
  - Aggression [Unknown]
  - Memory impairment [Unknown]
  - Dark circles under eyes [Unknown]
  - Eye colour change [Unknown]
  - Shock [Unknown]
  - Spinal pain [Unknown]
  - Agitation [Unknown]
  - Confusional state [Unknown]
  - Drug use disorder [Unknown]
  - Stress [Unknown]
  - Erectile dysfunction [Unknown]
  - Weight decreased [Unknown]
  - Drug withdrawal syndrome [Unknown]
  - Sensory disturbance [Unknown]
  - Insomnia [Unknown]
